FAERS Safety Report 6840953-5 (Version None)
Quarter: 2010Q3

REPORT INFORMATION
  Report Type: 
  Country: None (occurrence: None)
  Receive Date: 20100714
  Receipt Date: 20070619
  Transmission Date: 20110219
  Serious: No
  Sender: FDA-Public Use
  Company Number: US-PFIZER INC-2007051611

PATIENT
  Sex: Male
  Weight: 86.4 kg

DRUGS (3)
  1. CHANTIX [Suspect]
     Dates: start: 20070614
  2. NORVASC [Concomitant]
  3. ACCUPRIL [Concomitant]

REACTIONS (1)
  - MUSCLE SPASMS [None]
